FAERS Safety Report 7883664-X (Version None)
Quarter: 2011Q4

REPORT INFORMATION
  Report Type: 
  Country: None (occurrence: None)
  Receive Date: 20111102
  Receipt Date: 20111031
  Transmission Date: 20120403
  Serious: Yes (Other)
  Sender: FDA-Public Use
  Company Number: US-PFIZER INC-2011266625

PATIENT
  Age: 82 Year
  Sex: Male

DRUGS (7)
  1. METFORMIN [Concomitant]
     Dosage: UNK
  2. HEPARIN [Concomitant]
     Dosage: UNK
  3. ZOSYN [Suspect]
     Indication: PSEUDOMONAS INFECTION
     Dosage: UNK, 3X/DAY
     Route: 042
  4. XOPENEX [Concomitant]
     Dosage: UNK
  5. ADVAIR DISKUS 100/50 [Concomitant]
     Dosage: UNK
  6. PAROMOMYCIN [Concomitant]
     Dosage: UNK
  7. CARDIZEM [Concomitant]
     Dosage: UNK

REACTIONS (6)
  - SPUTUM DISCOLOURED [None]
  - OXYGEN SATURATION DECREASED [None]
  - DRUG INEFFECTIVE [None]
  - CARBON DIOXIDE INCREASED [None]
  - CHRONIC OBSTRUCTIVE PULMONARY DISEASE [None]
  - DRUG RESISTANCE [None]
